FAERS Safety Report 10743576 (Version 1)
Quarter: 2015Q1

REPORT INFORMATION
  Report Type: Spontaneous
  Country: CA (occurrence: CA)
  Receive Date: 20150128
  Receipt Date: 20150128
  Transmission Date: 20150721
  Serious: Yes (Other)
  Sender: FDA-Public Use
  Company Number: PHHY2015CA008243

PATIENT
  Age: 56 Year
  Sex: Male

DRUGS (8)
  1. TRIAMCINOLONE [Suspect]
     Active Substance: TRIAMCINOLONE
     Indication: VIRAL UVEITIS
  2. VALGANCICLOVIR [Concomitant]
     Active Substance: VALGANCICLOVIR
     Indication: IRIDOCYCLITIS
  3. GANCICLOVIR. [Concomitant]
     Active Substance: GANCICLOVIR
     Indication: IRIDOCYCLITIS
  4. FOSCARNET [Concomitant]
     Active Substance: FOSCARNET
     Indication: VIRAL UVEITIS
     Route: 031
  5. FOSCARNET [Concomitant]
     Active Substance: FOSCARNET
     Indication: IRIDOCYCLITIS
  6. TRIAMCINOLONE [Suspect]
     Active Substance: TRIAMCINOLONE
     Indication: IRIDOCYCLITIS
     Route: 047
  7. GANCICLOVIR. [Concomitant]
     Active Substance: GANCICLOVIR
     Indication: VIRAL UVEITIS
     Route: 061
  8. VALGANCICLOVIR [Concomitant]
     Active Substance: VALGANCICLOVIR
     Indication: VIRAL UVEITIS
     Route: 048

REACTIONS (5)
  - Necrotising retinitis [Recovering/Resolving]
  - Vitritis [Unknown]
  - Visual acuity reduced [Recovering/Resolving]
  - Cytomegalovirus infection [Recovered/Resolved]
  - Iridocyclitis [Recovered/Resolved]
